FAERS Safety Report 19706712 (Version 1)
Quarter: 2021Q3

REPORT INFORMATION
  Report Type: Spontaneous
  Country: US (occurrence: US)
  Receive Date: 20210816
  Receipt Date: 20210816
  Transmission Date: 20211014
  Serious: No
  Sender: FDA-Public Use
  Company Number: None

PATIENT
  Sex: Male
  Weight: 87.3 kg

DRUGS (9)
  1. MODERNA COVID?19 VACCINE [Concomitant]
     Active Substance: CX-024414
  2. CARVEDILOL. [Concomitant]
     Active Substance: CARVEDILOL
  3. IMODIUM AD [Concomitant]
     Active Substance: LOPERAMIDE HYDROCHLORIDE
  4. MULTAQ [Concomitant]
     Active Substance: DRONEDARONE
  5. MULTIVITAMIN [Concomitant]
     Active Substance: VITAMINS
  6. TAMSULOSIN [Concomitant]
     Active Substance: TAMSULOSIN
  7. CAPECITABINE. [Suspect]
     Active Substance: CAPECITABINE
     Indication: COLON CANCER
     Dosage: ?          OTHER FREQUENCY:BID 14/21 DAYS;?
     Route: 048
     Dates: start: 20210618
  8. LASIX [Concomitant]
     Active Substance: FUROSEMIDE
  9. SIMVASTATIN. [Concomitant]
     Active Substance: SIMVASTATIN

REACTIONS (2)
  - Diarrhoea [None]
  - Pain in extremity [None]
